FAERS Safety Report 6108210-2 (Version None)
Quarter: 2009Q1

REPORT INFORMATION
  Report Type: 
  Country: None (occurrence: None)
  Receive Date: 20090304
  Receipt Date: 20081024
  Transmission Date: 20090719
  Serious: Yes (Other)
  Sender: FDA-Public Use
  Company Number: US-002039

PATIENT
  Age: 78 Year
  Sex: Female

DRUGS (3)
  1. ISOVUE-370 [Suspect]
     Indication: COMPUTERISED TOMOGRAM ABDOMEN
     Dosage: 100ML QD INTRAVENOUS (NOT OTHERWISE SPECIFIED)
     Route: 042
     Dates: start: 20081016, end: 20081016
  2. ISOVUE-370 [Suspect]
     Indication: COMPUTERISED TOMOGRAM THORAX
     Dosage: 100ML QD INTRAVENOUS (NOT OTHERWISE SPECIFIED)
     Route: 042
     Dates: start: 20081016, end: 20081016
  3. ISOVUE-370 [Suspect]
     Indication: PAIN
     Dosage: 100ML QD INTRAVENOUS (NOT OTHERWISE SPECIFIED)
     Route: 042
     Dates: start: 20081016, end: 20081016

REACTIONS (1)
  - HYPERSENSITIVITY [None]
